FAERS Safety Report 22897472 (Version 2)
Quarter: 2024Q2

REPORT INFORMATION
  Report Type: Spontaneous
  Country: FR (occurrence: FR)
  Receive Date: 20230902
  Receipt Date: 20240528
  Transmission Date: 20240716
  Serious: Yes (Hospitalization, Other)
  Sender: FDA-Public Use
  Company Number: FR-SUN PHARMACEUTICAL INDUSTRIES LTD-2023RR-406315

PATIENT
  Age: 71 Year
  Sex: Female

DRUGS (5)
  1. QUETIAPINE [Suspect]
     Active Substance: QUETIAPINE
     Indication: Obsessive-compulsive disorder
     Dosage: 300 MILLIGRAM
     Route: 048
     Dates: start: 202201
  2. PAROXETINE [Suspect]
     Active Substance: PAROXETINE
     Indication: Depression
     Dosage: 25 MILIGRAMS AT NIGHT
     Route: 048
  3. CYAMEMAZINE [Suspect]
     Active Substance: CYAMEMAZINE
     Indication: Obsessive-compulsive disorder
     Dosage: 25 MILLIGRAM, MORNING, NOON AND NIGHT
     Route: 048
  4. ATARAX [Suspect]
     Active Substance: HYDROXYZINE HYDROCHLORIDE
     Indication: Depression
     Dosage: 25 MILLIGRAM, MORNING AND NIGHT
     Route: 048
  5. BROMAZEPAM [Suspect]
     Active Substance: BROMAZEPAM
     Indication: Depression
     Dosage: 4 DOSAGE FORM
     Route: 048

REACTIONS (3)
  - Femoral neck fracture [Recovered/Resolved]
  - Depressed level of consciousness [Recovering/Resolving]
  - Fall [Recovered/Resolved]

NARRATIVE: CASE EVENT DATE: 20230115
